FAERS Safety Report 10953703 (Version 1)
Quarter: 2015Q1

REPORT INFORMATION
  Report Type: Spontaneous
  Country: US (occurrence: US)
  Receive Date: 20150325
  Receipt Date: 20150325
  Transmission Date: 20150721
  Serious: Yes (Death)
  Sender: FDA-Public Use
  Company Number: US-CIPLA LTD.-2015US02406

PATIENT

DRUGS (8)
  1. COCAINE [Suspect]
     Active Substance: COCAINE
  2. PROMETHAZINE [Suspect]
     Active Substance: PROMETHAZINE\PROMETHAZINE HYDROCHLORIDE
  3. AMPHETAMINE [Suspect]
     Active Substance: AMPHETAMINE
  4. DEXTROMETHORPHAN [Suspect]
     Active Substance: DEXTROMETHORPHAN
  5. OXYCODONE [Suspect]
     Active Substance: OXYCODONE
  6. CITALOPRAM [Suspect]
     Active Substance: CITALOPRAM HYDROBROMIDE
  7. HEROIN [Suspect]
     Active Substance: DIACETYLMORPHINE
  8. FLUOXETINE [Suspect]
     Active Substance: FLUOXETINE\FLUOXETINE HYDROCHLORIDE

REACTIONS (1)
  - Drug abuse [Fatal]
